FAERS Safety Report 8835444 (Version 2)
Quarter: 2013Q1

REPORT INFORMATION
  Report Type: Report from Study
  Country: DE (occurrence: DE)
  Receive Date: 20121011
  Receipt Date: 20130327
  Transmission Date: 20140127
  Serious: Yes (Hospitalization)
  Sender: FDA-Public Use
  Company Number: PHHO2012DE013735

PATIENT
  Sex: 0

DRUGS (4)
  1. AMN107 [Suspect]
     Indication: CHRONIC MYELOID LEUKAEMIA
     Dosage: 400 MG, BID
     Route: 048
     Dates: start: 20080520, end: 20120904
  2. CARBIMAZOL [Concomitant]
     Indication: HYPERTHYROIDISM
     Dosage: 5 MG, QD
  3. METOPROLOL [Concomitant]
     Indication: HYPERTENSION
     Dosage: 50 MG, QD
  4. ENALAPRIL [Concomitant]
     Indication: HYPERTENSION
     Dosage: 30 MG, QD

REACTIONS (1)
  - Parkinsonism [Not Recovered/Not Resolved]
